FAERS Safety Report 7936350-1 (Version None)
Quarter: 2011Q4

REPORT INFORMATION
  Report Type: 
  Country: None (occurrence: None)
  Receive Date: 20111121
  Receipt Date: 20111114
  Transmission Date: 20120403
  Serious: Yes (Disabling, Other)
  Sender: FDA-Public Use
  Company Number: ACO_20976_2010

PATIENT
  Age: 28 Year
  Sex: Female

DRUGS (8)
  1. SERTRALINE HYDROCHLORIDE [Concomitant]
  2. AMPYRA [Suspect]
  3. AMPYRA [Suspect]
     Indication: GAIT DISTURBANCE
     Dosage: 10 MG, BID,
     Route: 048
     Dates: start: 20110101, end: 20110923
  4. AMPYRA [Suspect]
     Indication: GAIT DISTURBANCE
     Dosage: 10 MG, BID,
     Route: 048
     Dates: start: 20100101, end: 20101201
  5. ERGOCALCIFEROL [Concomitant]
  6. VESICARE [Concomitant]
  7. STOOL SOFTENER (DOCUSATE SODIUM) [Concomitant]
  8. AMLODIPINE [Concomitant]

REACTIONS (5)
  - ACTIVITIES OF DAILY LIVING IMPAIRED [None]
  - DRUG INEFFECTIVE [None]
  - TREMOR [None]
  - MULTIPLE SCLEROSIS [None]
  - DISEASE PROGRESSION [None]
